FAERS Safety Report 8567411-4 (Version None)
Quarter: 2012Q3

REPORT INFORMATION
  Report Type: 
  Country: None (occurrence: None)
  Receive Date: 20120803
  Receipt Date: 20120731
  Transmission Date: 20120928
  Serious: Yes (Other)
  Sender: FDA-Public Use
  Company Number: PHHY2012BR053542

PATIENT
  Sex: Male

DRUGS (2)
  1. RITALIN LA [Suspect]
     Indication: PSYCHOMOTOR HYPERACTIVITY
     Dosage: 1 DF, DAILY
     Route: 048
     Dates: start: 20110101
  2. NEULEPTIL [Concomitant]
     Indication: ANXIETY
     Dosage: 10 MG/ML
     Dates: start: 20120501

REACTIONS (1)
  - DEVELOPMENTAL DELAY [None]
